FAERS Safety Report 11989981 (Version 1)
Quarter: 2016Q1

REPORT INFORMATION
  Report Type: Spontaneous
  Country: US (occurrence: US)
  Receive Date: 20160202
  Receipt Date: 20160202
  Transmission Date: 20160526
  Serious: No
  Sender: FDA-Public Use
  Company Number: US-ROCHE-1607800

PATIENT
  Sex: Female

DRUGS (3)
  1. NUTROPIN [Suspect]
     Active Substance: SOMATROPIN
     Indication: GASTRIC CANCER
     Dosage: FOR 14 DAYS
     Route: 065
  2. NUTROPIN [Suspect]
     Active Substance: SOMATROPIN
     Indication: LUNG NEOPLASM MALIGNANT
  3. NUTROPIN [Suspect]
     Active Substance: SOMATROPIN
     Indication: BRAIN NEOPLASM MALIGNANT

REACTIONS (2)
  - No adverse event [Unknown]
  - Drug administration error [Unknown]
